FAERS Safety Report 5176822-9 (Version None)
Quarter: 2006Q4

REPORT INFORMATION
  Report Type: 
  Country: None (occurrence: None)
  Receive Date: 20061212
  Receipt Date: 20061212
  Transmission Date: 20070319
  Serious: Yes (Other)
  Sender: FDA-Public Use
  Company Number: None

PATIENT
  Sex: Male
  Weight: 79.3795 kg

DRUGS (2)
  1. REVLIMID [Suspect]
     Indication: MYELODYSPLASTIC SYNDROME
     Dosage: 5 MG ONE DAILY PO
     Route: 048
     Dates: start: 20061019
  2. REVLIMID [Suspect]
     Indication: MYELODYSPLASTIC SYNDROME
     Dosage: 5 MG ONE DAILY PO
     Route: 048
     Dates: start: 20061109

REACTIONS (2)
  - DIARRHOEA [None]
  - THERAPY NON-RESPONDER [None]
